FAERS Safety Report 9753474 (Version 3)
Quarter: 2013Q4

REPORT INFORMATION
  Report Type: Spontaneous
  Country: US (occurrence: US)
  Receive Date: 20131213
  Receipt Date: 20131216
  Transmission Date: 20140711
  Serious: Yes (Other)
  Sender: FDA-Public Use
  Company Number: US-TEVA-404421USA

PATIENT
  Age: 28 Year
  Sex: Female
  Weight: 80 kg

DRUGS (9)
  1. PARAGARD 380A [Suspect]
     Indication: CONTRACEPTION
     Route: 015
     Dates: start: 200709, end: 20130502
  2. FLONASE [Concomitant]
  3. RETIN A [Concomitant]
  4. BUSPIRONE HYDROCHLORIDE [Concomitant]
  5. FOLIC ACID [Concomitant]
  6. FISH OIL [Concomitant]
  7. MULTIVITAMIN [Concomitant]
  8. VITAMIN B COMPLEX [Concomitant]
  9. SINGULAIR [Concomitant]
     Indication: SEASONAL ALLERGY

REACTIONS (4)
  - Embedded device [Recovered/Resolved]
  - Medical device complication [Recovered/Resolved]
  - Pain [Recovered/Resolved]
  - Device expulsion [Recovered/Resolved]
